FAERS Safety Report 9209022 (Version 1)
Quarter: 2013Q1

REPORT INFORMATION
  Report Type: Spontaneous
  Country: US (occurrence: None)
  Receive Date: 20120820
  Receipt Date: 20120820
  Transmission Date: 20140127
  Serious: No
  Sender: FDA-Public Use
  Company Number: 1000037198

PATIENT
  Age: 75 Year
  Sex: Female

DRUGS (4)
  1. VIIBRYD (VILAZODONE)(10 MILLIGRAM, TABLETS) [Suspect]
     Indication: ANXIETY
     Route: 048
     Dates: start: 201109, end: 2011
  2. VIIBRYD (VILAZODONE)(10 MILLIGRAM, TABLETS) [Suspect]
     Route: 048
     Dates: start: 201109, end: 2011
  3. VIIBRYD (VILAZODONE) [Suspect]
     Route: 048
     Dates: start: 2011, end: 2011
  4. BYSTOLIC (NEBIVOLOL HYDROCHLORIDE) (NEBIVOLOL HYDROCHLORIDE) [Concomitant]

REACTIONS (2)
  - Staring [None]
  - Off label use [None]
